FAERS Safety Report 6764026-5 (Version None)
Quarter: 2010Q2

REPORT INFORMATION
  Report Type: 
  Country: None (occurrence: None)
  Receive Date: 20100610
  Receipt Date: 20090430
  Transmission Date: 20101027
  Serious: No
  Sender: FDA-Public Use
  Company Number: US-ASTRAZENECA-2009UW11098

PATIENT
  Age: 79 Year
  Sex: Female
  Weight: 66.7 kg

DRUGS (2)
  1. FASLODEX [Suspect]
     Route: 030
     Dates: start: 20090413
  2. ACIPHEX [Concomitant]

REACTIONS (4)
  - FAECES PALE [None]
  - NAUSEA [None]
  - RESTLESS LEGS SYNDROME [None]
  - VULVOVAGINAL DRYNESS [None]
